FAERS Safety Report 15523709 (Version 1)
Quarter: 2018Q4

REPORT INFORMATION
  Report Type: Spontaneous
  Country: US (occurrence: US)
  Receive Date: 20181019
  Receipt Date: 20181019
  Transmission Date: 20190205
  Serious: No
  Sender: FDA-Public Use
  Company Number: US-PFIZER INC-2017040074

PATIENT
  Age: 16 Year
  Sex: Male
  Weight: 52 kg

DRUGS (1)
  1. GENOTROPIN [Suspect]
     Active Substance: SOMATROPIN
     Dosage: 4 MG, DAILY

REACTIONS (8)
  - Blood urea increased [Unknown]
  - Lymphocyte count increased [Unknown]
  - Eosinophil count increased [Unknown]
  - Product dose omission [Unknown]
  - Monocyte count increased [Unknown]
  - Blood creatinine decreased [Unknown]
  - Blood urea nitrogen/creatinine ratio increased [Unknown]
  - Device issue [Unknown]

NARRATIVE: CASE EVENT DATE: 2017
